FAERS Safety Report 13368793 (Version 1)
Quarter: 2017Q1

REPORT INFORMATION
  Report Type: Spontaneous
  Country: US (occurrence: US)
  Receive Date: 20170324
  Receipt Date: 20170324
  Transmission Date: 20170429
  Serious: Yes (Hospitalization)
  Sender: FDA-Public Use
  Company Number: US-TEVA-751870USA

PATIENT
  Age: 2 Year
  Sex: Male
  Weight: 12.71 kg

DRUGS (1)
  1. QVAR [Suspect]
     Active Substance: BECLOMETHASONE DIPROPIONATE
     Indication: BRONCHIAL HYPERREACTIVITY
     Dosage: 1 PUFF TWICE A DAY
     Route: 055
     Dates: start: 201611

REACTIONS (3)
  - Drug administered to patient of inappropriate age [Unknown]
  - Asthma [Recovered/Resolved]
  - Respiratory syncytial virus infection [Recovered/Resolved]

NARRATIVE: CASE EVENT DATE: 201701
